FAERS Safety Report 11344736 (Version 2)
Quarter: 2015Q3

REPORT INFORMATION
  Report Type: Spontaneous
  Country: BE (occurrence: BE)
  Receive Date: 20150806
  Receipt Date: 20150813
  Transmission Date: 20151125
  Serious: Yes (Hospitalization, Disabling, Other)
  Sender: FDA-Public Use
  Company Number: BE-PFIZER INC-2015257637

PATIENT
  Age: 65 Year
  Sex: Female

DRUGS (1)
  1. DEPO-MEDROL [Suspect]
     Active Substance: METHYLPREDNISOLONE ACETATE
     Indication: BACK PAIN
     Dosage: 1 DF, SINGLE
     Route: 008
     Dates: start: 2012

REACTIONS (14)
  - Hydrocephalus [Unknown]
  - Sensory disturbance [Unknown]
  - Meningitis [Unknown]
  - Radiculopathy [Unknown]
  - Headache [Unknown]
  - Mobility decreased [Unknown]
  - Arachnoiditis [Unknown]
  - Condition aggravated [Unknown]
  - Product use issue [Unknown]
  - Cauda equina syndrome [Unknown]
  - Hypoaesthesia [Unknown]
  - Neurological symptom [Unknown]
  - Constipation [Unknown]
  - Urinary retention [Unknown]
